FAERS Safety Report 7732526-7 (Version None)
Quarter: 2011Q3

REPORT INFORMATION
  Report Type: 
  Country: None (occurrence: None)
  Receive Date: 20110906
  Receipt Date: 20110830
  Transmission Date: 20111222
  Serious: Yes (Hospitalization, Other)
  Sender: FDA-Public Use
  Company Number: US-AMGEN-USASP2011033493

PATIENT
  Age: 85 Year
  Sex: Female
  Weight: 54.875 kg

DRUGS (10)
  1. COUMADIN [Concomitant]
     Dosage: 0.5 MG, 3 TIMES/WK
  2. LOSARTAN [Concomitant]
     Dosage: 100 MG, QD
     Route: 048
  3. PROLIA [Suspect]
     Indication: OSTEOPOROSIS POSTMENOPAUSAL
     Dosage: 60 MG, Q6MO
     Route: 058
     Dates: start: 20110201
  4. COUMADIN [Concomitant]
     Dosage: 5 MG, 4 TIMES/WK
  5. CARVEDILOL [Concomitant]
     Dosage: 12.5 MG, BID
     Route: 048
  6. COUMADIN [Concomitant]
     Dosage: 5.5 MG, 3 TIMES/WK
  7. GLUCOSAMIN                         /00943601/ [Concomitant]
     Dosage: UNK
  8. CALCIUM W/VITAMIN D                /00188401/ [Concomitant]
     Dosage: UNK
  9. VITAMIN D [Concomitant]
     Dosage: 1000 UNIT, QD
  10. HYDRALAZINE HCL [Concomitant]
     Route: 042

REACTIONS (8)
  - IMPAIRED HEALING [None]
  - MEDICATION ERROR [None]
  - ARTHRALGIA [None]
  - DEEP VEIN THROMBOSIS [None]
  - HYPONATRAEMIA [None]
  - FALL [None]
  - FEMUR FRACTURE [None]
  - ANAEMIA [None]
